FAERS Safety Report 25812627 (Version 2)
Quarter: 2025Q4

REPORT INFORMATION
  Report Type: Report from Study
  Country: JP (occurrence: JP)
  Receive Date: 20250917
  Receipt Date: 20251008
  Transmission Date: 20260118
  Serious: Yes (Hospitalization)
  Sender: ROCHE
  Company Number: JP-ROCHE-10000389678

PATIENT
  Age: 58 Year
  Sex: Female
  Weight: 52 kg

DRUGS (1)
  1. RITUXAN [Suspect]
     Active Substance: RITUXIMAB
     Indication: Systemic scleroderma
     Dosage: SUBSEQUENT DOSES RECEIVED ON  20-APR-2023, 27-APR-2023, 08-MAY-2023, 17-MAY-2023, 20-OCT-2023, 12-AP
     Route: 042
     Dates: start: 20230420, end: 20241220

REACTIONS (1)
  - Breast cancer [Recovering/Resolving]

NARRATIVE: CASE EVENT DATE: 20250121
